FAERS Safety Report 17754608 (Version 1)
Quarter: 2020Q2

REPORT INFORMATION
  Report Type: Spontaneous
  Country: US (occurrence: US)
  Receive Date: 20200506
  Receipt Date: 20200506
  Transmission Date: 20200714
  Serious: No
  Sender: FDA-Public Use
  Company Number: US-009507513-2005USA000627

PATIENT
  Age: 63 Year
  Sex: Male

DRUGS (3)
  1. ASMANEX HFA [Suspect]
     Active Substance: MOMETASONE FUROATE
     Indication: ASTHMA
     Dosage: 1 INHALATION TWICE A DAY
     Route: 055
     Dates: start: 2019
  2. ASMANEX HFA [Suspect]
     Active Substance: MOMETASONE FUROATE
     Dosage: 1 INHALATION ONCE A DAY
     Route: 055
  3. ASMANEX HFA [Suspect]
     Active Substance: MOMETASONE FUROATE
     Dosage: 1 INHALATION ONCE A DAY
     Route: 055
     Dates: start: 2020

REACTIONS (5)
  - Poor quality device used [Unknown]
  - Expired product administered [Unknown]
  - Product quality issue [Unknown]
  - Dysphonia [Recovered/Resolved]
  - Product dose omission [Unknown]

NARRATIVE: CASE EVENT DATE: 2020
